FAERS Safety Report 4409089-7 (Version None)
Quarter: 2004Q2

REPORT INFORMATION
  Report Type: 
  Country: None (occurrence: None)
  Receive Date: 20040618
  Receipt Date: 20040517
  Transmission Date: 20050107
  Serious: No
  Sender: FDA-Public Use
  Company Number: US-JNJFOC-20040504297

PATIENT
  Age: 32 Year
  Sex: Female
  Weight: 74.3899 kg

DRUGS (6)
  1. ORTHO EVRA [Suspect]
     Indication: CONTRACEPTION
     Dosage: 1 DOSE(S), 3 IN 4 WEEK, TRANSDERMAL
     Route: 062
     Dates: start: 20040328, end: 20040501
  2. ORTHO TRI-CYCLEN [Suspect]
     Indication: CONTRACEPTION
     Dosage: 1 DOSE(S) 1 IN 1 DAY, ORAL
     Route: 048
     Dates: start: 20040509
  3. EFFEXOR XR [Concomitant]
  4. TRILEPTAL [Concomitant]
  5. SERAQUIL  (ALL OTHR THERAPEUTIC PRODUCTS) [Concomitant]
  6. ATIVAN [Concomitant]

REACTIONS (2)
  - CONDITION AGGRAVATED [None]
  - MIGRAINE [None]
